FAERS Safety Report 25073707 (Version 4)
Quarter: 2025Q3

REPORT INFORMATION
  Report Type: Report from Study
  Country: US (occurrence: US)
  Receive Date: 20250313
  Receipt Date: 20250819
  Transmission Date: 20251021
  Serious: Yes (Hospitalization)
  Sender: BAYER HEALTHCARE PHARMACEUTICALS INC.
  Company Number: US-BAYER-2025A030170

PATIENT
  Age: 83 Year
  Sex: Female

DRUGS (2)
  1. ADEMPAS [Suspect]
     Active Substance: RIOCIGUAT
     Indication: Pulmonary arterial hypertension
  2. ADEMPAS [Suspect]
     Active Substance: RIOCIGUAT
     Indication: Pulmonary arterial hypertension
     Dosage: 2.5 MG, TID
     Route: 048
     Dates: start: 202412

REACTIONS (12)
  - Dizziness [None]
  - Heart rate increased [None]
  - Chest pain [None]
  - Joint swelling [None]
  - Peripheral swelling [None]
  - Chest discomfort [None]
  - Fatigue [None]
  - Product dose omission in error [None]
  - Drug ineffective [None]
  - Constipation [Not Recovered/Not Resolved]
  - Product dose omission issue [None]
  - Product dose omission issue [None]

NARRATIVE: CASE EVENT DATE: 20250201
